FAERS Safety Report 8577806-0 (Version None)
Quarter: 2012Q3

REPORT INFORMATION
  Report Type: 
  Country: None (occurrence: None)
  Receive Date: 20120808
  Receipt Date: 20120726
  Transmission Date: 20120928
  Serious: No
  Sender: FDA-Public Use
  Company Number: US-BIOGENIDEC-2012BI022035

PATIENT
  Sex: Male

DRUGS (1)
  1. TYSABRI [Suspect]
     Indication: MULTIPLE SCLEROSIS
     Route: 042
     Dates: start: 20110509

REACTIONS (9)
  - FATIGUE [None]
  - GAIT DISTURBANCE [None]
  - CHEST PAIN [None]
  - HYPOAESTHESIA [None]
  - DYSPNOEA [None]
  - DISCOMFORT [None]
  - DISORIENTATION [None]
  - COGNITIVE DISORDER [None]
  - SENSATION OF HEAVINESS [None]
